FAERS Safety Report 8939075 (Version 1)
Quarter: 2012Q4

REPORT INFORMATION
  Report Type: Report from Study
  Country: CA (occurrence: CA)
  Receive Date: 20121203
  Receipt Date: 20121203
  Transmission Date: 20130627
  Serious: Yes (Hospitalization)
  Sender: FDA-Public Use
  Company Number: CA-JNJFOC-20121112015

PATIENT
  Age: 34 Year
  Sex: Female
  Weight: 66 kg

DRUGS (5)
  1. REMICADE [Suspect]
     Indication: CROHN^S DISEASE
     Route: 042
     Dates: start: 20110113
  2. SALOFALK [Concomitant]
     Dosage: 8 pills a day
     Route: 065
  3. ZOPICLONE [Concomitant]
     Dosage: 1 at bed time
     Route: 065
  4. BIRTH CONTROL PILL [Concomitant]
     Route: 065
  5. CIPRALEX [Concomitant]
     Route: 065

REACTIONS (2)
  - Abdominal pain [Recovering/Resolving]
  - Vomiting [Recovering/Resolving]
